FAERS Safety Report 14765182 (Version 2)
Quarter: 2018Q2

REPORT INFORMATION
  Report Type: Spontaneous
  Country: IT (occurrence: IT)
  Receive Date: 20180416
  Receipt Date: 20180529
  Transmission Date: 20180711
  Serious: Yes (Hospitalization)
  Sender: FDA-Public Use
  Company Number: IT-TEVA-2018-IT-880192

PATIENT
  Age: 74 Year
  Sex: Female
  Weight: 54 kg

DRUGS (5)
  1. AFLIBERCEPT [Concomitant]
     Active Substance: AFLIBERCEPT
     Indication: ADENOCARCINOMA OF COLON
     Route: 042
  2. IRINOTECAN FRESENIUS 20 MG/ML [Suspect]
     Active Substance: IRINOTECAN
     Indication: ADENOCARCINOMA OF COLON
  3. FLUOROURACIL TEVA [Suspect]
     Active Substance: FLUOROURACIL
     Indication: ADENOCARCINOMA OF COLON
     Route: 042
     Dates: start: 20171122, end: 20171124
  4. FLUOROURACIL TEVA [Suspect]
     Active Substance: FLUOROURACIL
     Indication: COLON CANCER
     Route: 040
     Dates: start: 20171122, end: 20171122
  5. IRINOTECAN FRESENIUS 20 MG/ML [Suspect]
     Active Substance: IRINOTECAN
     Indication: COLON CANCER
     Route: 042
     Dates: start: 20171122, end: 20171122

REACTIONS (4)
  - Ejection fraction decreased [Unknown]
  - Left atrial dilatation [Unknown]
  - Cardiac failure [Unknown]
  - Left ventricular dilatation [Unknown]

NARRATIVE: CASE EVENT DATE: 20171122
